FAERS Safety Report 6194873-2 (Version None)
Quarter: 2009Q2

REPORT INFORMATION
  Report Type: 
  Country: None (occurrence: None)
  Receive Date: 20090519
  Receipt Date: 20081103
  Transmission Date: 20091009
  Serious: No
  Sender: FDA-Public Use
  Company Number: US-TYCO HEALTHCARE/MALLINCKRODT-T200801874

PATIENT

DRUGS (1)
  1. METHADONE [Suspect]
     Indication: BACK PAIN
     Dosage: 7 TABLETS, BID
     Dates: start: 20060101, end: 20080501

REACTIONS (2)
  - TOOTH DISORDER [None]
  - WEIGHT INCREASED [None]
